FAERS Safety Report 15434824 (Version 1)
Quarter: 2018Q3

REPORT INFORMATION
  Report Type: Spontaneous
  Country: US (occurrence: US)
  Receive Date: 20180922
  Receipt Date: 20180922
  Transmission Date: 20181010
  Serious: Yes (Disabling)
  Sender: FDA-Public Use
  Company Number: None

PATIENT
  Age: 65 Year
  Sex: Male

DRUGS (6)
  1. REPATHA [Suspect]
     Active Substance: EVOLOCUMAB
     Indication: HYPERCHOLESTEROLAEMIA
     Dosage: ?          QUANTITY:1 DF DOSAGE FORM;?
     Route: 030
     Dates: start: 20171004, end: 20180404
  2. PLAVIX [Concomitant]
     Active Substance: CLOPIDOGREL BISULFATE
  3. ALIEVE [Concomitant]
  4. DIOVAN [Concomitant]
     Active Substance: VALSARTAN
  5. THYROXINE [Concomitant]
     Active Substance: LEVOTHYROXINE
  6. NALDOLOL [Concomitant]

REACTIONS (3)
  - Movement disorder [None]
  - Pain in extremity [None]
  - Asthenia [None]

NARRATIVE: CASE EVENT DATE: 20180401
